FAERS Safety Report 22197192 (Version 2)
Quarter: 2023Q2

REPORT INFORMATION
  Report Type: Spontaneous
  Country: TR (occurrence: TR)
  Receive Date: 20230411
  Receipt Date: 20230502
  Transmission Date: 20230722
  Serious: Yes (Other)
  Sender: FDA-Public Use
  Company Number: TR-AMGEN-TURSP2023060389

PATIENT

DRUGS (4)
  1. TRASTUZUMAB [Suspect]
     Active Substance: TRASTUZUMAB
     Indication: Breast cancer
     Dosage: UNK
     Route: 065
  2. FILGRASTIM [Suspect]
     Active Substance: FILGRASTIM
     Indication: Product used for unknown indication
     Dosage: UNK
     Route: 065
  3. EPIRUBICIN [Concomitant]
     Active Substance: EPIRUBICIN
     Indication: Product used for unknown indication
     Dosage: UNK
     Route: 065
  4. VINCRISTINE [Concomitant]
     Active Substance: VINCRISTINE
     Indication: Product used for unknown indication
     Dosage: UNK
     Route: 065

REACTIONS (43)
  - Syncope [Unknown]
  - Rectal ulcer [Unknown]
  - Hallucination [Unknown]
  - Hypokalaemia [Unknown]
  - Anaphylactic reaction [Unknown]
  - Thrombocytopenia [Unknown]
  - Neutropenia [Unknown]
  - Neuropathy peripheral [Unknown]
  - Cardiac dysfunction [Unknown]
  - Drug interaction [Unknown]
  - Flushing [Unknown]
  - Nail infection [Unknown]
  - Vulvovaginal dryness [Unknown]
  - Abdominal distension [Unknown]
  - Vertigo [Unknown]
  - Salivary duct inflammation [Unknown]
  - Toothache [Unknown]
  - Stomatitis [Unknown]
  - Anaemia [Unknown]
  - Diarrhoea [Unknown]
  - Nausea [Unknown]
  - Constipation [Unknown]
  - Dyspepsia [Unknown]
  - Abdominal pain upper [Unknown]
  - Hypersensitivity [Unknown]
  - Hot flush [Unknown]
  - Vomiting [Unknown]
  - Fatigue [Unknown]
  - Decreased appetite [Unknown]
  - Arthralgia [Unknown]
  - Palmar-plantar erythrodysaesthesia syndrome [Unknown]
  - Anxiety [Unknown]
  - Insomnia [Unknown]
  - Dysphonia [Unknown]
  - Hypercalcaemia [Unknown]
  - Headache [Unknown]
  - Hypersomnia [Unknown]
  - Alopecia [Unknown]
  - Rash [Unknown]
  - Pain [Unknown]
  - Hypertension [Unknown]
  - Hypotension [Unknown]
  - Abdominal pain [Unknown]
